FAERS Safety Report 6279765-2 (Version None)
Quarter: 2009Q3

REPORT INFORMATION
  Report Type: 
  Country: None (occurrence: None)
  Receive Date: 20090721
  Receipt Date: 20090707
  Transmission Date: 20100115
  Serious: Yes (Other)
  Sender: FDA-Public Use
  Company Number: GB-DEXPHARM-20091008

PATIENT
  Sex: Male

DRUGS (1)
  1. OMEPRAZOLE [Suspect]

REACTIONS (2)
  - NO REACTION ON PREVIOUS EXPOSURE TO DRUG [None]
  - WHITE BLOOD CELL COUNT DECREASED [None]
